FAERS Safety Report 20420432 (Version 1)
Quarter: 2022Q1

REPORT INFORMATION
  Report Type: Spontaneous
  Country: US (occurrence: None)
  Receive Date: 20220202
  Receipt Date: 20220202
  Transmission Date: 20220423
  Serious: No
  Sender: FDA-Public Use
  Company Number: None

PATIENT
  Sex: Male

DRUGS (5)
  1. PREDNISOLONE [Suspect]
     Active Substance: PREDNISOLONE
  2. DORZOLAMIDE [Suspect]
     Active Substance: DORZOLAMIDE
  3. TIMOLOL MALEATE [Suspect]
     Active Substance: TIMOLOL MALEATE
  4. BRIMONIDINE [Suspect]
     Active Substance: BRIMONIDINE TARTRATE
  5. LATANOPROST [Suspect]
     Active Substance: LATANOPROST

REACTIONS (1)
  - False positive investigation result [None]
